FAERS Safety Report 23076490 (Version 2)
Quarter: 2024Q1

REPORT INFORMATION
  Report Type: Spontaneous
  Country: US (occurrence: US)
  Receive Date: 20231017
  Receipt Date: 20240105
  Transmission Date: 20240410
  Serious: No
  Sender: FDA-Public Use
  Company Number: US-PFIZER INC-PV202300169361

PATIENT
  Age: 69 Year
  Sex: Female

DRUGS (2)
  1. HYDROCORTISONE [Suspect]
     Active Substance: HYDROCORTISONE
     Dosage: UNK
  2. METHOTREXATE [Concomitant]
     Active Substance: METHOTREXATE
     Dosage: UNK
     Dates: end: 20231005

REACTIONS (5)
  - Drug ineffective [Unknown]
  - Swelling face [Unknown]
  - Joint swelling [Unknown]
  - Psoriasis [Not Recovered/Not Resolved]
  - Condition aggravated [Unknown]
